FAERS Safety Report 5168889-9 (Version None)
Quarter: 2006Q4

REPORT INFORMATION
  Report Type: 
  Country: None (occurrence: None)
  Receive Date: 20061201
  Receipt Date: 20061120
  Transmission Date: 20070319
  Serious: Yes (Other)
  Sender: FDA-Public Use
  Company Number: 2006144529

PATIENT
  Sex: Female
  Weight: 68.0396 kg

DRUGS (3)
  1. ZOLOFT [Suspect]
     Indication: DEPRESSION
  2. SERTRALINE [Suspect]
     Indication: DEPRESSION
     Dosage: 100 MG (100 MG, 1 IN 1 D)
     Dates: start: 20060101
  3. TRAZODONE HCL [Concomitant]

REACTIONS (7)
  - ABNORMAL DREAMS [None]
  - DEPRESSION [None]
  - DISEASE RECURRENCE [None]
  - DRUG INEFFECTIVE [None]
  - MULTIPLE SCLEROSIS [None]
  - NERVOUSNESS [None]
  - SLEEP DISORDER [None]
